FAERS Safety Report 8613878-2 (Version None)
Quarter: 2012Q3

REPORT INFORMATION
  Report Type: 
  Country: None (occurrence: None)
  Receive Date: 20120823
  Receipt Date: 20120810
  Transmission Date: 20120928
  Serious: Yes (Other)
  Sender: FDA-Public Use
  Company Number: US-009507513-1208USA005940

PATIENT

DRUGS (4)
  1. VICTRELIS [Suspect]
     Indication: HEPATITIS C
     Dosage: 800 MG, Q8H
  2. RIBAVIRIN [Suspect]
     Indication: HEPATITIS C
  3. PEGASYS [Suspect]
     Indication: HEPATITIS C
  4. VICTRELIS [Suspect]
     Dosage: 800 MG, Q8H
     Dates: start: 20120716, end: 20120701

REACTIONS (2)
  - SURGERY [None]
  - ADVERSE DRUG REACTION [None]
